FAERS Safety Report 6662627-6 (Version None)
Quarter: 2010Q1

REPORT INFORMATION
  Report Type: 
  Country: None (occurrence: None)
  Receive Date: 20100329
  Receipt Date: 20100316
  Transmission Date: 20100710
  Serious: Yes (Hospitalization)
  Sender: FDA-Public Use
  Company Number: 167-20484-10021606

PATIENT
  Age: 90 Year
  Sex: Male

DRUGS (6)
  1. INNOHOEP (TINZAPARIN SODIUM) [Suspect]
     Indication: DEEP VEIN THROMBOSIS
     Dosage: SUBCUTANEOUS
     Route: 058
     Dates: start: 20100125, end: 20100125
  2. ASPIRIN [Concomitant]
  3. CARBIMAZOLE (CARBIMAZONE) [Concomitant]
  4. LEVOTHYROXINE SODIUM [Concomitant]
  5. OMEPRAZOLE [Concomitant]
  6. PROPRANOLOL [Concomitant]

REACTIONS (2)
  - HAEMATOMA [None]
  - OEDEMA PERIPHERAL [None]
